FAERS Safety Report 4872464-0 (Version None)
Quarter: 2006Q1

REPORT INFORMATION
  Report Type: 
  Country: None (occurrence: None)
  Receive Date: 20060104
  Receipt Date: 20051227
  Transmission Date: 20060701
  Serious: Yes (Hospitalization)
  Sender: FDA-Public Use
  Company Number: US-MERCK-0512USA03732

PATIENT
  Sex: Female

DRUGS (8)
  1. HYZAAR [Suspect]
     Route: 048
  2. REQUIP [Concomitant]
     Route: 065
  3. LABETALOL HYDROCHLORIDE [Concomitant]
     Route: 065
  4. DILTIAZEM MALATE [Concomitant]
     Route: 065
  5. PLAVIX [Concomitant]
     Route: 065
  6. ZOLOFT [Concomitant]
     Route: 065
  7. ASPIRIN [Concomitant]
     Route: 065
  8. CARBIDOPA [Concomitant]
     Route: 065

REACTIONS (2)
  - HIP FRACTURE [None]
  - OSTEOARTHRITIS [None]
